FAERS Safety Report 10305756 (Version 1)
Quarter: 2014Q3

REPORT INFORMATION
  Report Type: Spontaneous
  Country: US (occurrence: None)
  Receive Date: 20140714
  Receipt Date: 20140714
  Transmission Date: 20150326
  Serious: Yes (Other)
  Sender: FDA-Public Use
  Company Number: None

PATIENT
  Age: 73 Year
  Sex: Female
  Weight: 56.7 kg

DRUGS (8)
  1. ACYCLOVIR. [Concomitant]
     Active Substance: ACYCLOVIR
  2. CALCIUM [Concomitant]
     Active Substance: CALCIUM
  3. PROPAFENONE HCL [Concomitant]
     Active Substance: PROPAFENONE HYDROCHLORIDE
  4. ELRQUIS [Concomitant]
  5. FLURAZEPAM HCL [Concomitant]
     Active Substance: FLURAZEPAM HYDROCHLORIDE
  6. PREMPRO [Concomitant]
     Active Substance: ESTROGENS, CONJUGATED\MEDROXYPROGESTERONE ACETATE
  7. LEVOTHYROXINE [Suspect]
     Active Substance: LEVOTHYROXINE
     Indication: HYPOTHYROIDISM
     Dosage: 1 TABLET, DAILY, ORALLY
     Route: 048
     Dates: start: 20140306, end: 20140609
  8. EYE CAPS [Concomitant]

REACTIONS (4)
  - Hypothyroidism [None]
  - Product quality issue [None]
  - Lethargy [None]
  - Body temperature decreased [None]

NARRATIVE: CASE EVENT DATE: 20140426
